FAERS Safety Report 18999333 (Version 1)
Quarter: 2021Q1

REPORT INFORMATION
  Report Type: Other
  Country: FR (occurrence: FR)
  Receive Date: 20210312
  Receipt Date: 20210312
  Transmission Date: 20210420
  Serious: Yes (Hospitalization)
  Sender: FDA-Public Use
  Company Number: FR-CELLTRION INC.-2018FR022361

PATIENT

DRUGS (9)
  1. BENDAMUSTINE ACCORD [Suspect]
     Active Substance: BENDAMUSTINE
     Indication: B-CELL LYMPHOMA
     Dosage: 346 MG, 1 MONTH
     Route: 042
     Dates: start: 20171212, end: 20180601
  2. LORAZEPAM. [Concomitant]
     Active Substance: LORAZEPAM
     Indication: MIXED ANXIETY AND DEPRESSIVE DISORDER
     Route: 048
  3. FENOFIBRATE. [Concomitant]
     Active Substance: FENOFIBRATE
     Indication: DYSLIPIDAEMIA
     Route: 048
  4. LEVOTHYROX [Concomitant]
     Active Substance: LEVOTHYROXINE
     Indication: HYPOTHYROIDISM
     Route: 048
  5. VALACICLOVIR [Concomitant]
     Active Substance: VALACYCLOVIR HYDROCHLORIDE
     Indication: IMMUNODEFICIENCY
     Dosage: UNK
     Route: 048
     Dates: start: 201712
  6. TRUXIMA [Suspect]
     Active Substance: RITUXIMAB-ABBS
     Indication: B-CELL LYMPHOMA
     Dosage: 720 MG, 1 MONTH
     Route: 042
     Dates: start: 20171212, end: 20180531
  7. ESCITALOPRAM [Concomitant]
     Active Substance: ESCITALOPRAM OXALATE
     Indication: MIXED ANXIETY AND DEPRESSIVE DISORDER
     Route: 048
  8. PANTOPRAZOLE [Concomitant]
     Active Substance: PANTOPRAZOLE
     Indication: PRODUCT USED FOR UNKNOWN INDICATION
     Route: 048
  9. LOXAPAC [LOXAPINE] [Concomitant]
     Active Substance: LOXAPINE
     Indication: MIXED ANXIETY AND DEPRESSIVE DISORDER
     Route: 048

REACTIONS (4)
  - Agranulocytosis [Recovered/Resolved]
  - Underdose [Unknown]
  - Lymphopenia [Not Recovered/Not Resolved]
  - Neutropenia [Not Recovered/Not Resolved]

NARRATIVE: CASE EVENT DATE: 20180215
